FAERS Safety Report 12269035 (Version 1)
Quarter: 2016Q2

REPORT INFORMATION
  Report Type: Spontaneous
  Country: DE (occurrence: DE)
  Receive Date: 20160414
  Receipt Date: 20160414
  Transmission Date: 20160815
  Serious: Yes (Other)
  Sender: FDA-Public Use
  Company Number: DE-TEVA-649516GER

PATIENT
  Sex: Female
  Weight: 61 kg

DRUGS (4)
  1. NOVALGIN [Concomitant]
     Active Substance: METAMIZOLE SODIUM
     Route: 065
  2. L-THYROXIN [Concomitant]
     Active Substance: LEVOTHYROXINE SODIUM
     Route: 065
  3. METOPROLOL. [Concomitant]
     Active Substance: METOPROLOL
  4. PAMIDRONAT [Suspect]
     Active Substance: PAMIDRONATE DISODIUM
     Indication: RENAL CELL CARCINOMA
     Route: 042
     Dates: start: 20151002, end: 20160219

REACTIONS (1)
  - Hepatitis toxic [Recovered/Resolved]
